FAERS Safety Report 7177195-2 (Version None)
Quarter: 2010Q4

REPORT INFORMATION
  Report Type: 
  Country: None (occurrence: None)
  Receive Date: 20101220
  Receipt Date: 20101214
  Transmission Date: 20110411
  Serious: Yes (Hospitalization)
  Sender: FDA-Public Use
  Company Number: US-B.I. PHARMACEUTICALS,INC./RIDGEFIELD-2010-BP-14389BP

PATIENT
  Age: 83 Year
  Sex: Female

DRUGS (5)
  1. PRADAXA [Suspect]
     Indication: ATRIAL FIBRILLATION
     Dosage: 150 MG
     Route: 048
     Dates: start: 20101213, end: 20101214
  2. LASIX [Concomitant]
     Indication: DIURETIC THERAPY
     Route: 048
  3. FOLIC ACID [Concomitant]
     Indication: SUPPLEMENTATION THERAPY
     Route: 048
  4. METOPROLOL TARTRATE [Concomitant]
     Indication: HYPERTENSION
     Route: 048
  5. ASPIRIN [Concomitant]
     Indication: ARTHRITIS
     Dosage: 81 MG
     Route: 048
     Dates: end: 20101214

REACTIONS (1)
  - LOWER GASTROINTESTINAL HAEMORRHAGE [None]
